FAERS Safety Report 7469836-7 (Version None)
Quarter: 2011Q2

REPORT INFORMATION
  Report Type: 
  Country: None (occurrence: None)
  Receive Date: 20110510
  Receipt Date: 20110422
  Transmission Date: 20111010
  Serious: No
  Sender: FDA-Public Use
  Company Number: US-B.I. PHARMACEUTICALS,INC./RIDGEFIELD-2011-BP-11535BP

PATIENT
  Sex: Female

DRUGS (1)
  1. PRADAXA [Suspect]

REACTIONS (6)
  - GASTROOESOPHAGEAL REFLUX DISEASE [None]
  - OESOPHAGEAL SPASM [None]
  - ABDOMINAL PAIN [None]
  - WEIGHT DECREASED [None]
  - FLATULENCE [None]
  - DIARRHOEA [None]
